FAERS Safety Report 8535774 (Version 4)
Quarter: 2013Q2

REPORT INFORMATION
  Report Type: Report from Study
  Country: CA (occurrence: CA)
  Receive Date: 20120430
  Receipt Date: 20130507
  Transmission Date: 20140414
  Serious: Yes (Other)
  Sender: FDA-Public Use
  Company Number: PHHY2010CA28652

PATIENT
  Age: 83 Year
  Sex: Female

DRUGS (5)
  1. ACLASTA [Suspect]
     Indication: OSTEOPOROSIS
     Dosage: UNK
     Route: 042
     Dates: start: 20090224
  2. ACLASTA [Suspect]
     Dosage: UNK
     Route: 042
     Dates: start: 20100322
  3. ACLASTA [Suspect]
     Dosage: UNK
     Route: 042
     Dates: start: 20110320
  4. ACLASTA [Suspect]
     Dosage: UNK
     Route: 042
     Dates: start: 20120416
  5. ACLASTA [Suspect]
     Dosage: 5 MG \100ML
     Route: 042
     Dates: start: 20130415

REACTIONS (12)
  - Fall [Unknown]
  - Lower limb fracture [Unknown]
  - Osteoarthritis [Recovered/Resolved with Sequelae]
  - Arthralgia [Recovering/Resolving]
  - Bursitis [Recovered/Resolved with Sequelae]
  - Bronchitis [Unknown]
  - Pain in extremity [Recovering/Resolving]
  - Musculoskeletal pain [Recovering/Resolving]
  - Malaise [Unknown]
  - Back pain [Unknown]
  - Pain [Unknown]
  - Influenza [Unknown]
